FAERS Safety Report 14991197 (Version 2)
Quarter: 2018Q2

REPORT INFORMATION
  Report Type: Report from Study
  Country: DE (occurrence: DE)
  Receive Date: 20180608
  Receipt Date: 20180611
  Transmission Date: 20180711
  Serious: Yes (Other)
  Sender: FDA-Public Use
  Company Number: DE-BAYER-2018-106221

PATIENT
  Age: 76 Year
  Sex: Male

DRUGS (1)
  1. GADOBUTROL. [Suspect]
     Active Substance: GADOBUTROL
     Indication: NUCLEAR MAGNETIC RESONANCE IMAGING BRAIN
     Dosage: UNK, ONCE
     Route: 042

REACTIONS (3)
  - Cerebral infarction [None]
  - Central nervous system necrosis [None]
  - Contrast media deposition [None]
